FAERS Safety Report 6653539-2 (Version None)
Quarter: 2010Q1

REPORT INFORMATION
  Report Type: 
  Country: None (occurrence: None)
  Receive Date: 20100326
  Receipt Date: 20100316
  Transmission Date: 20100710
  Serious: Yes (Hospitalization, Other)
  Sender: FDA-Public Use
  Company Number: JP-GENZYME-THYM-1001356

PATIENT
  Sex: Male
  Weight: 45 kg

DRUGS (6)
  1. THYMOGLOBULIN [Suspect]
     Indication: KIDNEY TRANSPLANT REJECTION
     Dosage: 1.5 MG/KG, QD
     Route: 042
     Dates: start: 20100128, end: 20100206
  2. ACYCLOVIR SODIUM [Concomitant]
     Indication: DRUG USE FOR UNKNOWN INDICATION
     Route: 065
  3. SULFAMETOXAZOL MED TRIMETOPRIM [Concomitant]
     Indication: DRUG USE FOR UNKNOWN INDICATION
     Route: 065
  4. NORMAL HUMAN IMMUNOGLOBULIN [Concomitant]
     Indication: DRUG USE FOR UNKNOWN INDICATION
     Route: 065
  5. VALGANCICLOVIR HCL [Concomitant]
     Indication: DRUG USE FOR UNKNOWN INDICATION
  6. MYCOPHENOLATE MOFETIL [Concomitant]
     Indication: DRUG USE FOR UNKNOWN INDICATION

REACTIONS (13)
  - BACK PAIN [None]
  - BLOOD CREATININE INCREASED [None]
  - CYTOMEGALOVIRUS INFECTION [None]
  - DECREASED APPETITE [None]
  - DIARRHOEA [None]
  - DYSURIA [None]
  - LYMPHOPENIA [None]
  - MALAISE [None]
  - PAIN IN EXTREMITY [None]
  - PROCTALGIA [None]
  - PYREXIA [None]
  - TREMOR [None]
  - WHITE BLOOD CELL COUNT DECREASED [None]
